FAERS Safety Report 20085115 (Version 1)
Quarter: 2021Q4

REPORT INFORMATION
  Report Type: Spontaneous
  Country: US (occurrence: US)
  Receive Date: 20211118
  Receipt Date: 20211118
  Transmission Date: 20220303
  Serious: Yes (Other)
  Sender: FDA-Public Use
  Company Number: US-SAMSUNG-SB-2021-26627

PATIENT
  Age: 16 Year
  Sex: Female

DRUGS (4)
  1. INFLIXIMAB [Suspect]
     Active Substance: INFLIXIMAB
     Indication: Takayasu^s arteritis
     Dosage: UNKNOWN
     Route: 065
  2. HEPARIN [Concomitant]
     Active Substance: HEPARIN SODIUM
     Indication: Takayasu^s arteritis
     Dosage: UNKNOWN
     Route: 065
  3. PREDNISONE [Concomitant]
     Active Substance: PREDNISONE
     Indication: Takayasu^s arteritis
     Dosage: UNKNOWN TAPER DOSE
     Route: 065
  4. RIVAROXABAN [Concomitant]
     Active Substance: RIVAROXABAN
     Indication: Takayasu^s arteritis
     Dosage: UNKNOWN
     Route: 065

REACTIONS (2)
  - Peripheral artery angioplasty [Unknown]
  - Off label use [Unknown]
